FAERS Safety Report 14547988 (Version 1)
Quarter: 2018Q1

REPORT INFORMATION
  Report Type: Spontaneous
  Country: US (occurrence: US)
  Receive Date: 20180219
  Receipt Date: 20180219
  Transmission Date: 20180509
  Serious: Yes (Hospitalization, Other)
  Sender: FDA-Public Use
  Company Number: US-MYLANLABS-2018M1011213

PATIENT
  Age: 71 Year
  Sex: Male

DRUGS (4)
  1. DEXAMETHASONE. [Suspect]
     Active Substance: DEXAMETHASONE
     Indication: PRODUCT USED FOR UNKNOWN INDICATION
     Dosage: 3ML (15MG) MIXED WITH 2ML OF BUPIVACAINE 0.25% AT THE LEVEL OF L5 S1
     Route: 008
  2. VORICONAZOLE. [Suspect]
     Active Substance: VORICONAZOLE
     Indication: ASPERGILLUS INFECTION
     Dosage: 300 MG, UNK
     Route: 048
  3. BUPIVACAINE. [Concomitant]
     Active Substance: BUPIVACAINE
     Indication: PRODUCT USED FOR UNKNOWN INDICATION
     Dosage: 2ML (0.25%)
     Route: 008
  4. DEXAMETHASONE. [Suspect]
     Active Substance: DEXAMETHASONE
     Dosage: 4 MG, Q6H
     Route: 042

REACTIONS (5)
  - Osteomyelitis fungal [Recovered/Resolved]
  - Intervertebral discitis [Recovered/Resolved]
  - Aspergillus infection [Recovered/Resolved]
  - Orbital apex syndrome [Recovered/Resolved]
  - Adrenal insufficiency [Unknown]
